FAERS Safety Report 8518749-8 (Version None)
Quarter: 2012Q3

REPORT INFORMATION
  Report Type: 
  Country: None (occurrence: None)
  Receive Date: 20120718
  Receipt Date: 20120710
  Transmission Date: 20120928
  Serious: Yes (Hospitalization, Other)
  Sender: FDA-Public Use
  Company Number: PHHY2012FR052708

PATIENT
  Sex: Female

DRUGS (8)
  1. PREVISCAN [Suspect]
     Dosage: 10 MG, QD
  2. ZOLPIDEM TARTRATE [Concomitant]
  3. LEXOMIL [Concomitant]
  4. LEVOTHYROXINE SODIUM [Concomitant]
  5. LASIX [Concomitant]
  6. FEMARA [Suspect]
     Dosage: 2.5 MG, QD
     Route: 048
  7. ACETAMINOPHEN [Concomitant]
  8. CITALOPRAM HYDROBROMIDE [Suspect]
     Dosage: 20 MG, QD

REACTIONS (4)
  - PELVIC MASS [None]
  - INTERNATIONAL NORMALISED RATIO INCREASED [None]
  - MENOMETRORRHAGIA [None]
  - VAGINAL HAEMORRHAGE [None]
